FAERS Safety Report 6840804-9 (Version None)
Quarter: 2010Q3

REPORT INFORMATION
  Report Type: 
  Country: None (occurrence: None)
  Receive Date: 20100714
  Receipt Date: 20100625
  Transmission Date: 20110219
  Serious: Yes (Other)
  Sender: FDA-Public Use
  Company Number: PHFR2010GB01127

PATIENT

DRUGS (1)
  1. EXFORGE [Suspect]
     Dosage: UNK
     Route: 048

REACTIONS (2)
  - GASTROSTOMY TUBE INSERTION [None]
  - MOTOR NEURONE DISEASE [None]
